FAERS Safety Report 21672331 (Version 1)
Quarter: 2022Q4

REPORT INFORMATION
  Report Type: Report from Study
  Country: US (occurrence: US)
  Receive Date: 20221202
  Receipt Date: 20221202
  Transmission Date: 20230112
  Serious: No
  Sender: FDA-Public Use
  Company Number: US-ABBVIE-4180099

PATIENT
  Sex: Male

DRUGS (2)
  1. HUMIRA [Suspect]
     Active Substance: ADALIMUMAB
     Indication: Rheumatoid arthritis
     Dosage: CF
  2. Moderna [Concomitant]
     Indication: COVID-19 immunisation
     Route: 030

REACTIONS (2)
  - Therapeutic response shortened [Unknown]
  - Pain [Unknown]
